FAERS Safety Report 7735171-2 (Version None)
Quarter: 2011Q3

REPORT INFORMATION
  Report Type: 
  Country: None (occurrence: None)
  Receive Date: 20110907
  Receipt Date: 20110903
  Transmission Date: 20111222
  Serious: Yes (Hospitalization, Other)
  Sender: FDA-Public Use
  Company Number: US-PFIZER INC-2011200752

PATIENT
  Age: 90 Year
  Sex: Male

DRUGS (4)
  1. KETOCONAZOLE [Concomitant]
     Indication: PROSTATE CANCER
     Dosage: 20 MG, 3X/DAY
  2. HYDROCODONE [Concomitant]
     Indication: PROSTATE CANCER
     Dosage: UNK
  3. DOXAZOSIN MESILATE [Suspect]
     Dosage: 8 MG, 1X/DAY
     Dates: end: 20110823
  4. DOXAZOSIN MESILATE [Suspect]
     Dosage: 2 MG, UNK

REACTIONS (4)
  - ORTHOSTATIC HYPOTENSION [None]
  - HYPOXIA [None]
  - DRUG DISPENSING ERROR [None]
  - PULMONARY OEDEMA [None]
